FAERS Safety Report 9178729 (Version 2)
Quarter: 2013Q2

REPORT INFORMATION
  Report Type: Spontaneous
  Country: IT (occurrence: IT)
  Receive Date: 20130321
  Receipt Date: 20130417
  Transmission Date: 20140414
  Serious: Yes (Death, Hospitalization)
  Sender: FDA-Public Use
  Company Number: IT-BRISTOL-MYERS SQUIBB COMPANY-17439118

PATIENT
  Age: 89 Year
  Sex: Female

DRUGS (4)
  1. COUMADIN TABS 5 MG [Suspect]
     Indication: ATRIAL FIBRILLATION
     Route: 048
     Dates: start: 20111031, end: 20130128
  2. METFORMIN HCL [Concomitant]
  3. AMIODARONE HCL [Concomitant]
  4. CANDESARTAN CILEXETIL [Concomitant]

REACTIONS (2)
  - Haemothorax [Fatal]
  - Pneumothorax [Unknown]
